FAERS Safety Report 16528507 (Version 2)
Quarter: 2019Q3

REPORT INFORMATION
  Report Type: Spontaneous
  Country: CH (occurrence: CH)
  Receive Date: 20190703
  Receipt Date: 20190712
  Transmission Date: 20191004
  Serious: Yes (Other)
  Sender: FDA-Public Use
  Company Number: CH-ASTRAZENECA-2019SE95465

PATIENT
  Age: 960 Month
  Sex: Female

DRUGS (15)
  1. FLECTOR EP [Concomitant]
     Active Substance: DICLOFENAC EPOLAMINE
     Dosage: AS NECESSARY
     Dates: start: 20190607
  2. FLATULEX [Concomitant]
     Active Substance: ACTIVATED CHARCOAL\DIMETHICONE
     Dates: start: 201901
  3. DIOVAN [Suspect]
     Active Substance: VALSARTAN
     Route: 048
     Dates: start: 201805
  4. TEMESTA (LORAZEPAM) [Suspect]
     Active Substance: LORAZEPAM
     Dosage: AS NECESSARY
     Route: 048
     Dates: start: 201901
  5. MAGNESIUM HYDROGEN ASPARTATE [Concomitant]
     Active Substance: MAGNESIUM ASPARTATE ANHYDROUS
     Dates: start: 20190618, end: 20190625
  6. NEXIUM [Suspect]
     Active Substance: ESOMEPRAZOLE MAGNESIUM
     Route: 048
     Dates: start: 201806
  7. DAFALGAN [Suspect]
     Active Substance: ACETAMINOPHEN
     Dosage: MAX 3X/D, REGULAR INTAKE ; AS NECESSARY
     Route: 048
     Dates: start: 201901
  8. LAXOBERON [Concomitant]
     Active Substance: SODIUM PICOSULFATE
     Dates: start: 201811
  9. METAMUCIL [Concomitant]
     Active Substance: PLANTAGO SEED
     Dates: start: 20190614
  10. COLECALCIFEROL [Concomitant]
     Active Substance: CHOLECALCIFEROL
     Dates: start: 201808
  11. REMERON [Suspect]
     Active Substance: MIRTAZAPINE
     Route: 048
     Dates: start: 201811
  12. TEMESTA (LORAZEPAM) [Suspect]
     Active Substance: LORAZEPAM
     Route: 048
     Dates: start: 201901
  13. VENLAFAXINE [Suspect]
     Active Substance: VENLAFAXINE HYDROCHLORIDE
     Route: 048
     Dates: start: 201811
  14. TORASEMIDE [Suspect]
     Active Substance: TORSEMIDE
     Route: 048
     Dates: start: 201808
  15. TEMGESIC [Concomitant]
     Active Substance: BUPRENORPHINE HYDROCHLORIDE
     Dosage: AS NECESSARY
     Dates: start: 201901

REACTIONS (1)
  - Cholestatic liver injury [Not Recovered/Not Resolved]

NARRATIVE: CASE EVENT DATE: 201807
